FAERS Safety Report 9467464 (Version 3)
Quarter: 2014Q1

REPORT INFORMATION
  Report Type: Spontaneous
  Country: US (occurrence: US)
  Receive Date: 20130821
  Receipt Date: 20140109
  Transmission Date: 20141002
  Serious: Yes (Hospitalization, Other)
  Sender: FDA-Public Use
  Company Number: PHEH2013US017584

PATIENT
  Sex: Female

DRUGS (8)
  1. DIOVAN [Suspect]
     Indication: HYPERTENSION
     Dosage: 80 MG, UNK
     Route: 048
  2. DIOVAN [Suspect]
     Dosage: 160 MG, UNK
     Route: 048
  3. DIOVAN [Suspect]
     Dosage: 320 MG, QD
     Route: 048
  4. METFORMIN [Concomitant]
     Indication: DIABETES MELLITUS
     Dosage: UNK UKN, UNK
  5. AMITRIPTYLINE [Concomitant]
     Dosage: UNK UKN, UNK
  6. QUINAPRIL [Concomitant]
     Indication: HYPERTENSION
     Dosage: 10 MG, QD
     Route: 048
  7. GLYBURIDE [Concomitant]
     Dosage: UNK UKN, UNK
  8. GABAPENTIN [Concomitant]

REACTIONS (10)
  - Convulsion [Unknown]
  - Neuropathy peripheral [Unknown]
  - Inflammation [Unknown]
  - Hypoaesthesia [Unknown]
  - Nerve injury [Unknown]
  - Dysstasia [Unknown]
  - Gait disturbance [Unknown]
  - Bronchitis [Unknown]
  - Oedema peripheral [Unknown]
  - Blood pressure increased [Unknown]
